FAERS Safety Report 14407634 (Version 3)
Quarter: 2018Q1

REPORT INFORMATION
  Report Type: Report from Study
  Country: JP (occurrence: JP)
  Receive Date: 20180118
  Receipt Date: 20180313
  Transmission Date: 20180509
  Serious: Yes (Death, Other)
  Sender: FDA-Public Use
  Company Number: JP-EMD SERONO-9005210

PATIENT
  Age: 75 Year
  Sex: Female

DRUGS (1)
  1. BAVENCIO [Suspect]
     Active Substance: AVELUMAB
     Indication: NEUROENDOCRINE CARCINOMA OF THE SKIN
     Route: 042
     Dates: end: 20171214

REACTIONS (2)
  - Gastrointestinal haemorrhage [Fatal]
  - Gastric perforation [Recovered/Resolved]

NARRATIVE: CASE EVENT DATE: 20171227
